FAERS Safety Report 15262325 (Version 1)
Quarter: 2018Q3

REPORT INFORMATION
  Report Type: Spontaneous
  Country: SK (occurrence: SK)
  Receive Date: 20180809
  Receipt Date: 20180809
  Transmission Date: 20181010
  Serious: Yes (Hospitalization)
  Sender: FDA-Public Use
  Company Number: PHHY2018SK067463

PATIENT
  Age: 59 Year
  Sex: Female

DRUGS (4)
  1. NOLPAZA [Concomitant]
     Active Substance: PANTOPRAZOLE SODIUM
     Indication: PROPHYLAXIS
     Dosage: 40 MG, UNK
     Route: 048
  2. XARELTO [Concomitant]
     Active Substance: RIVAROXABAN
     Indication: VASCULITIS
     Dosage: 20 MG, UNK
     Route: 048
  3. AMOKSIKLAV [Suspect]
     Active Substance: AMOXICILLIN\CLAVULANATE POTASSIUM
     Indication: URINARY TRACT INFECTION
     Dosage: 1.2 G, Q12H
     Route: 048
     Dates: start: 20180416, end: 20180419
  4. CIPHIN [Suspect]
     Active Substance: BENZYL ALCOHOL\CIPROFLOXACIN HYDROCHLORIDE\HYDROCORTISONE
     Indication: URINARY TRACT INFECTION
     Dosage: 500 MG, UNK
     Route: 048
     Dates: start: 20180416, end: 20180419

REACTIONS (1)
  - Clostridium colitis [Not Recovered/Not Resolved]

NARRATIVE: CASE EVENT DATE: 20180419
